FAERS Safety Report 26207332 (Version 1)
Quarter: 2025Q4

REPORT INFORMATION
  Report Type: Report from Study
  Country: EU (occurrence: EU)
  Receive Date: 20251229
  Receipt Date: 20251229
  Transmission Date: 20260117
  Serious: Yes (Death, Life-Threatening, Hospitalization, Congenital Anomaly, Other)
  Sender: SANOFI AVENTIS
  Company Number: EU-SA-2025SA363175

PATIENT
  Age: 44 Year
  Sex: Female

DRUGS (1)
  1. BELUMOSUDIL MESYLATE [Suspect]
     Active Substance: BELUMOSUDIL MESYLATE
     Indication: Chronic graft versus host disease
     Dosage: UNK
     Dates: start: 20251029

REACTIONS (7)
  - Bacterial infection [Fatal]
  - Cough [Fatal]
  - Nasopharyngitis [Fatal]
  - Fungal infection [Fatal]
  - Intestinal ischaemia [Fatal]
  - Inflammatory marker increased [Unknown]
  - Abdominal pain [Unknown]

NARRATIVE: CASE EVENT DATE: 20251031
